FAERS Safety Report 5068904-7 (Version None)
Quarter: 2006Q3

REPORT INFORMATION
  Report Type: 
  Country: None (occurrence: None)
  Receive Date: 20060802
  Receipt Date: 20060531
  Transmission Date: 20061208
  Serious: No
  Sender: FDA-Public Use
  Company Number: US-BRISTOL-MYERS SQUIBB COMPANY-13398011

PATIENT
  Age: 38 Year
  Sex: Female
  Weight: 162 kg

DRUGS (1)
  1. COUMADIN [Suspect]
     Indication: THROMBOSIS
     Dates: start: 19930101

REACTIONS (3)
  - HAEMATOCHEZIA [None]
  - INTERNATIONAL NORMALISED RATIO DECREASED [None]
  - PAIN IN EXTREMITY [None]
